FAERS Safety Report 25037948 (Version 1)
Quarter: 2025Q1

REPORT INFORMATION
  Report Type: Spontaneous
  Country: FR (occurrence: FR)
  Receive Date: 20250304
  Receipt Date: 20250304
  Transmission Date: 20250409
  Serious: Yes (Death, Other)
  Sender: BRISTOL-MYERS SQUIBB COMPANY
  Company Number: None

PATIENT
  Age: 77 Year
  Sex: Female
  Weight: 73 kg

DRUGS (4)
  1. ELIQUIS [Interacting]
     Active Substance: APIXABAN
     Indication: Deep vein thrombosis
     Route: 048
     Dates: start: 20250129, end: 20250203
  2. PREDNISONE [Interacting]
     Active Substance: PREDNISONE
     Indication: Pain
     Route: 048
     Dates: start: 20241231
  3. BRINTELLIX [Interacting]
     Active Substance: VORTIOXETINE HYDROBROMIDE
     Indication: Affective disorder
     Route: 048
     Dates: start: 20241029, end: 20241221
  4. BRINTELLIX [Interacting]
     Active Substance: VORTIOXETINE HYDROBROMIDE
     Route: 048
     Dates: start: 20241222

REACTIONS (2)
  - Gastrointestinal haemorrhage [Fatal]
  - Drug interaction [Unknown]

NARRATIVE: CASE EVENT DATE: 20250202
